FAERS Safety Report 4539354-4 (Version None)
Quarter: 2004Q4

REPORT INFORMATION
  Report Type: 
  Country: None (occurrence: None)
  Receive Date: 20041223
  Receipt Date: 20041206
  Transmission Date: 20050328
  Serious: Yes (Disabling)
  Sender: FDA-Public Use
  Company Number: B0361967A

PATIENT
  Age: 12 Year
  Sex: Male

DRUGS (2)
  1. WELLBUTRIN SR [Suspect]
     Indication: MAJOR DEPRESSION
     Dosage: 100 MG/TWICE PER DAY
  2. METHYLPHENIDATE HCL [Concomitant]

REACTIONS (4)
  - DIFFICULTY IN WALKING [None]
  - PRURITUS [None]
  - SERUM SICKNESS [None]
  - SYSTEMIC LUPUS ERYTHEMATOSUS RASH [None]
